FAERS Safety Report 4552957-6 (Version None)
Quarter: 2005Q1

REPORT INFORMATION
  Report Type: 
  Country: None (occurrence: None)
  Receive Date: 20050113
  Receipt Date: 20050107
  Transmission Date: 20050727
  Serious: Yes (Hospitalization, Disabling)
  Sender: FDA-Public Use
  Company Number: TPA2005A00033

PATIENT
  Age: 59 Year
  Sex: Male
  Weight: 99.7913 kg

DRUGS (9)
  1. ACTOS [Suspect]
     Indication: DIABETES MELLITUS NON-INSULIN-DEPENDENT
     Dosage: 30 MG, 1 IN 1 D, PER ORAL
     Route: 048
     Dates: start: 20010101
  2. HUMULIN 70/30 [Concomitant]
  3. LOTREL (LOTREL) [Concomitant]
  4. FLOMAX [Concomitant]
  5. NEURONTIN [Concomitant]
  6. DOLOBID [Concomitant]
  7. PAXIL [Concomitant]
  8. ASPIRIN [Concomitant]
  9. METOPROLOL TARTRATE [Concomitant]

REACTIONS (1)
  - VENOUS OCCLUSION [None]
